FAERS Safety Report 6016636-0 (Version None)
Quarter: 2008Q4

REPORT INFORMATION
  Report Type: 
  Country: None (occurrence: None)
  Receive Date: 20081222
  Receipt Date: 20081215
  Transmission Date: 20090506
  Serious: Yes (Hospitalization)
  Sender: FDA-Public Use
  Company Number: PHRM2008FR01124

PATIENT
  Sex: Female
  Weight: 101 kg

DRUGS (7)
  1. TEGRETOL [Suspect]
     Indication: SCIATICA
     Dosage: 200 MG, BID
     Route: 048
     Dates: start: 20071001, end: 20080102
  2. EFFEXOR [Concomitant]
     Dosage: 75 MG, QD
     Route: 048
  3. LEVOTHYROX [Concomitant]
     Dosage: 50 UG, QD
     Route: 048
  4. ATACAND [Concomitant]
     Dosage: 16 MG, QD
     Route: 048
  5. VERAPAMIL [Concomitant]
     Dosage: 120 MG, QD
     Route: 048
  6. AMLOD [Concomitant]
     Dosage: 5 MG, QD
     Route: 048
  7. ZAMUDOL [Concomitant]
     Indication: SCIATICA
     Route: 048
     Dates: start: 20071001

REACTIONS (31)
  - ALVEOLITIS ALLERGIC [None]
  - AORTIC VALVE INCOMPETENCE [None]
  - BETA 2 MICROGLOBULIN INCREASED [None]
  - BIOPSY BRONCHUS NORMAL [None]
  - BRONCHOALVEOLAR LAVAGE [None]
  - BRONCHOALVEOLAR LAVAGE ABNORMAL [None]
  - C-REACTIVE PROTEIN INCREASED [None]
  - COUGH [None]
  - CREPITATIONS [None]
  - DERMO-HYPODERMITIS [None]
  - DRUG RASH WITH EOSINOPHILIA AND SYSTEMIC SYMPTOMS [None]
  - DYSPNOEA [None]
  - EJECTION FRACTION DECREASED [None]
  - EOSINOPHILIA [None]
  - FIBRIN D DIMER INCREASED [None]
  - GINGIVITIS [None]
  - HYPOXIA [None]
  - INTERSTITIAL LUNG DISEASE [None]
  - LYMPHADENOPATHY [None]
  - MITRAL VALVE INCOMPETENCE [None]
  - OXYGEN SUPPLEMENTATION [None]
  - PERICARDIAL EFFUSION [None]
  - PO2 DECREASED [None]
  - PRURITUS [None]
  - PULMONARY EOSINOPHILIA [None]
  - PYREXIA [None]
  - RASH [None]
  - RASH ERYTHEMATOUS [None]
  - RESPIRATORY RATE INCREASED [None]
  - TOXIC SKIN ERUPTION [None]
  - URTICARIA [None]
